FAERS Safety Report 24437754 (Version 4)
Quarter: 2025Q1

REPORT INFORMATION
  Report Type: Report from Study
  Country: MX (occurrence: MX)
  Receive Date: 20241015
  Receipt Date: 20250117
  Transmission Date: 20250409
  Serious: Yes (Hospitalization, Other)
  Sender: NOVARTIS
  Company Number: MX-002147023-NVSC2023MX084910

PATIENT
  Age: 49 Year
  Sex: Female
  Weight: 69 kg

DRUGS (17)
  1. OFATUMUMAB [Suspect]
     Active Substance: OFATUMUMAB
     Indication: Multiple sclerosis
     Dosage: 20 MG, QMO
     Route: 058
     Dates: start: 20230404
  2. OFATUMUMAB [Suspect]
     Active Substance: OFATUMUMAB
     Dosage: 20 MG, QMO
     Route: 058
  3. OFATUMUMAB [Suspect]
     Active Substance: OFATUMUMAB
     Route: 058
  4. OFATUMUMAB [Suspect]
     Active Substance: OFATUMUMAB
     Route: 058
     Dates: start: 20230509
  5. OFATUMUMAB [Suspect]
     Active Substance: OFATUMUMAB
     Dosage: 20 MG, QMO
     Route: 058
  6. OFATUMUMAB [Suspect]
     Active Substance: OFATUMUMAB
     Route: 065
     Dates: start: 20240210
  7. OFATUMUMAB [Suspect]
     Active Substance: OFATUMUMAB
     Dosage: 20 MG, QMO
     Route: 058
     Dates: start: 20240309
  8. OFATUMUMAB [Suspect]
     Active Substance: OFATUMUMAB
     Dosage: 20 MG, QMO
     Route: 058
  9. OFATUMUMAB [Suspect]
     Active Substance: OFATUMUMAB
     Dosage: 20 MG, QMO
     Route: 058
     Dates: start: 20230705
  10. OFATUMUMAB [Suspect]
     Active Substance: OFATUMUMAB
     Dosage: 20 MG, QMO
     Route: 058
  11. OFATUMUMAB [Suspect]
     Active Substance: OFATUMUMAB
     Dosage: 20 MG, QMO
     Route: 058
     Dates: start: 20241023
  12. OFATUMUMAB [Suspect]
     Active Substance: OFATUMUMAB
     Route: 058
  13. OFATUMUMAB [Suspect]
     Active Substance: OFATUMUMAB
     Dosage: 20 MG, QMO (1 APPLICATION OF 20MG)
     Route: 058
     Dates: end: 20241215
  14. PREDNISONE [Concomitant]
     Active Substance: PREDNISONE
     Indication: Product used for unknown indication
     Route: 065
  15. MONTELUKAST [Concomitant]
     Active Substance: MONTELUKAST
     Indication: Seasonal allergy
     Route: 048
  16. VITAMIN B COMPLEX [Concomitant]
     Active Substance: CYANOCOBALAMIN\DEXPANTHENOL\NIACINAMIDE\PYRIDOXINE HYDROCHLORIDE\RIBOFLAVIN 5^-PHOSPHATE SODIUM\THIA
     Indication: Vitamin supplementation
     Dosage: 1 DOSAGE FORM, QD
     Route: 048
     Dates: start: 202201
  17. METHYLPREDNISOLONE [Concomitant]
     Active Substance: METHYLPREDNISOLONE
     Indication: Product used for unknown indication
     Route: 065

REACTIONS (29)
  - Multiple sclerosis relapse [Recovered/Resolved with Sequelae]
  - Headache [Recovered/Resolved with Sequelae]
  - Vertigo [Recovered/Resolved with Sequelae]
  - Fatigue [Recovered/Resolved with Sequelae]
  - Illness [Unknown]
  - Malaise [Not Recovered/Not Resolved]
  - Cerebral disorder [Unknown]
  - Multiple sclerosis relapse [Recovered/Resolved with Sequelae]
  - Multiple sclerosis relapse [Not Recovered/Not Resolved]
  - Fatigue [Recovered/Resolved]
  - Mood altered [Not Recovered/Not Resolved]
  - Discouragement [Unknown]
  - Asthenia [Not Recovered/Not Resolved]
  - Listless [Unknown]
  - Urticaria [Recovered/Resolved]
  - Pruritus [Unknown]
  - Food allergy [Recovered/Resolved]
  - Off label use [Unknown]
  - Weight decreased [Unknown]
  - Food poisoning [Recovered/Resolved]
  - Diarrhoea [Recovered/Resolved]
  - Pain [Unknown]
  - Feeling abnormal [Unknown]
  - Headache [Not Recovered/Not Resolved]
  - Inappropriate schedule of product administration [Unknown]
  - Gait disturbance [Not Recovered/Not Resolved]
  - Pain in extremity [Not Recovered/Not Resolved]
  - Therapeutic product effect decreased [Not Recovered/Not Resolved]
  - Vertigo [Not Recovered/Not Resolved]

NARRATIVE: CASE EVENT DATE: 20230404
